FAERS Safety Report 8978382 (Version 1)
Quarter: 2012Q4

REPORT INFORMATION
  Report Type: 
  Country: US (occurrence: US)
  Receive Date: 20121220
  Receipt Date: 20121220
  Transmission Date: 20130627
  Serious: No
  Sender: FDA-Public Use
  Company Number: US-009507513-1212USA007152

PATIENT
  Sex: Female

DRUGS (3)
  1. SAPHRIS [Suspect]
     Indication: BIPOLAR DISORDER
     Dosage: 10 mg, qd
     Route: 060
  2. TOPAMAX [Concomitant]
  3. TRAZODONE HYDROCHLORIDE [Concomitant]

REACTIONS (2)
  - Respiratory disorder [Recovering/Resolving]
  - Dyspnoea [Recovering/Resolving]
